FAERS Safety Report 5900571-X (Version None)
Quarter: 2008Q3

REPORT INFORMATION
  Report Type: 
  Country: None (occurrence: None)
  Receive Date: 20080926
  Receipt Date: 20080923
  Transmission Date: 20090109
  Serious: Yes (Hospitalization)
  Sender: FDA-Public Use
  Company Number: GB-PFIZER INC-2008070353

PATIENT

DRUGS (1)
  1. LUSTRAL [Suspect]
     Route: 048

REACTIONS (1)
  - GASTRIC BYPASS [None]
